FAERS Safety Report 9156771 (Version 1)
Quarter: 2013Q1

REPORT INFORMATION
  Report Type: Spontaneous
  Country: US (occurrence: None)
  Receive Date: 20130206
  Receipt Date: 20130206
  Transmission Date: 20140127
  Serious: Yes (Other)
  Sender: FDA-Public Use
  Company Number: 2012FR0396

PATIENT
  Sex: Male

DRUGS (1)
  1. KINERET (ANAKINRA), NOT AVAILABLE [Suspect]
     Indication: MEVALONATE KINASE DEFICIENCY

REACTIONS (3)
  - Meningitis aseptic [None]
  - Amyloidosis [None]
  - Renal transplant [None]
